FAERS Safety Report 16545011 (Version 1)
Quarter: 2019Q3

REPORT INFORMATION
  Report Type: Spontaneous
  Country: US (occurrence: US)
  Receive Date: 20190708
  Receipt Date: 20190708
  Transmission Date: 20191004
  Serious: Yes (Other)
  Sender: FDA-Public Use
  Company Number: None

PATIENT
  Age: 70 Year
  Sex: Female
  Weight: 69.75 kg

DRUGS (15)
  1. CAPECITABINE 500MG [Concomitant]
     Active Substance: CAPECITABINE
  2. RANITIDINE. [Concomitant]
     Active Substance: RANITIDINE
  3. CALCIUM 500-D [Concomitant]
  4. SERTRALINE [Concomitant]
     Active Substance: SERTRALINE HYDROCHLORIDE
  5. PHENYTOIN. [Concomitant]
     Active Substance: PHENYTOIN
  6. LOSARTAN. [Concomitant]
     Active Substance: LOSARTAN
  7. LEVETIRACETAM. [Concomitant]
     Active Substance: LEVETIRACETAM
  8. APTIOM [Concomitant]
     Active Substance: ESLICARBAZEPINE ACETATE
  9. CALCIUM 600 [Concomitant]
     Active Substance: CALCIUM
  10. FLONASE [Concomitant]
     Active Substance: FLUTICASONE PROPIONATE
  11. MULTIVITAMIN [Concomitant]
     Active Substance: VITAMINS
  12. CAPECITABINE. [Suspect]
     Active Substance: CAPECITABINE
     Indication: PANCREATIC CARCINOMA
     Route: 048
     Dates: start: 20190513, end: 20190708
  13. ONE DAILY CALCIUM/IRON [Concomitant]
  14. ZONISAMIDE. [Concomitant]
     Active Substance: ZONISAMIDE
  15. ZYRTEC [Concomitant]
     Active Substance: CETIRIZINE HYDROCHLORIDE

REACTIONS (2)
  - Laboratory test abnormal [None]
  - Drug intolerance [None]

NARRATIVE: CASE EVENT DATE: 20190708
